FAERS Safety Report 9046557 (Version 1)
Quarter: 2013Q1

REPORT INFORMATION
  Report Type: Spontaneous
  Country: DE (occurrence: DE)
  Receive Date: 20130203
  Receipt Date: 20130203
  Transmission Date: 20140127
  Serious: Yes (Death, Life-Threatening, Hospitalization, Other)
  Sender: FDA-Public Use
  Company Number: DE-NAPPMUNDI-DEU-2013-0010405

PATIENT
  Age: 79 None
  Sex: Female

DRUGS (36)
  1. NORSPAN [Suspect]
     Indication: PAIN
     Dosage: 5 MCG, Q1H
     Route: 062
     Dates: start: 20100101
  2. NOVALGIN [Suspect]
     Indication: PAIN
     Dosage: 20 DROP, BID
     Route: 048
     Dates: start: 20100323
  3. NOVALGIN [Suspect]
     Dosage: 20 DROP, AM
     Route: 048
  4. CLOPIDOGREL [Suspect]
     Indication: THROMBOSIS PROPHYLAXIS
     Dosage: 75 MG, AM
     Route: 048
     Dates: start: 20100330
  5. ROCEPHIN [Suspect]
     Indication: PRODUCT USED FOR UNKNOWN INDICATION
     Dosage: 2 G, UNK
     Route: 048
     Dates: start: 20100331, end: 20100401
  6. AMLODIPIN [Suspect]
     Indication: HYPERTENSION
     Dosage: 5 MG, BID
     Route: 048
     Dates: start: 20100331
  7. LOCOL [Suspect]
     Indication: HYPERCHOLESTEROLAEMIA
     Dosage: 80 MG, UNK
     Route: 048
     Dates: start: 20100331
  8. RANITIDIN [Suspect]
     Indication: PROPHYLAXIS AGAINST GASTROINTESTINAL ULCER
     Dosage: 300 MG, PM
     Route: 048
     Dates: start: 20100331
  9. BISOPROLOL [Suspect]
     Indication: HYPERTENSION
     Dosage: 2.5 MG, UNK
     Route: 048
     Dates: start: 20100404
  10. BISOPROLOL [Suspect]
     Dosage: 5 MG, AM
     Route: 048
     Dates: start: 20100404
  11. CEFUROXIME [Suspect]
     Indication: CLOSTRIDIAL INFECTION
     Dosage: 1.5 G, BID
     Route: 042
     Dates: start: 20100405, end: 20100407
  12. CIPROFLOXACIN [Suspect]
     Indication: CLOSTRIDIAL INFECTION
     Dosage: 400 MG, BID
     Route: 042
     Dates: start: 20100405, end: 20100407
  13. CIPROBAY [Suspect]
     Indication: GASTROENTERITIS
     Dosage: 250 MG, BID
     Route: 048
     Dates: start: 20100407, end: 20100407
  14. ZINACEF [Suspect]
     Indication: GASTROENTERITIS
     Dosage: UNK, BID
     Route: 048
     Dates: start: 20100407
  15. FALITHROM [Suspect]
     Indication: THROMBOSIS PROPHYLAXIS
     Dosage: UNK
     Route: 048
     Dates: start: 20100407, end: 20100419
  16. PANTOZOL [Concomitant]
     Indication: PROPHYLAXIS AGAINST GASTROINTESTINAL ULCER
     Dosage: 40 MG, AM
     Route: 048
     Dates: start: 20100315, end: 20100330
  17. CARVEDILOL [Concomitant]
     Indication: HYPERTENSION
     Dosage: 12.5 MG, BID
     Route: 048
     Dates: start: 20100101, end: 20100404
  18. ESPUMISAN                          /00159501/ [Concomitant]
     Indication: FLATULENCE
     Dosage: UNK, QID
     Route: 048
     Dates: start: 20100316, end: 20100404
  19. VEROSPIRON [Concomitant]
     Indication: HYPERTENSION
     Dosage: 25 MG, UNK
     Route: 048
     Dates: start: 20100101, end: 20100407
  20. FERRO SANOL DUODENAL [Concomitant]
     Indication: MINERAL SUPPLEMENTATION
     Dosage: 100 MG, AM
     Route: 048
     Dates: start: 20100101, end: 20100412
  21. IRENAT [Concomitant]
     Indication: HYPERTHYROIDISM
     Dosage: 40 DROP, PM
     Route: 048
     Dates: start: 20100315, end: 20100407
  22. IRENAT [Concomitant]
     Dosage: 20 DROP, TID
     Route: 048
     Dates: end: 20100407
  23. METHIZOL [Concomitant]
     Indication: HYPERTHYROIDISM
     Dosage: 5 MG, AM
     Route: 048
     Dates: start: 20100214, end: 20100407
  24. KARVEA [Concomitant]
     Indication: HYPERTENSION
     Dosage: 300 MG, AM
     Route: 048
     Dates: start: 20100101
  25. CLEXANE [Concomitant]
     Indication: THROMBOSIS PROPHYLAXIS
     Dosage: 0.6 ML, TWICE
     Route: 058
  26. CLEXANE [Concomitant]
     Dosage: 0.5 ML, UNK
     Route: 058
     Dates: start: 20100315
  27. TOREM                              /01036501/ [Concomitant]
     Indication: HYPERTENSION
     Dosage: 10 MG, AM
     Route: 048
     Dates: start: 20100101
  28. TRANXILIUM [Concomitant]
     Indication: RESTLESSNESS
     Dosage: 50 MG, NOCTE
     Route: 048
     Dates: start: 20100330, end: 20100330
  29. ASS [Concomitant]
     Indication: THROMBOSIS PROPHYLAXIS
     Dosage: 100 MG, UNK
     Route: 048
     Dates: start: 20100330
  30. REVATIO [Concomitant]
     Indication: PULMONARY HYPERTENSION
     Dosage: 40 MG, UNK
     Route: 048
     Dates: start: 20100331, end: 20100331
  31. CONTRAST AGENT [Concomitant]
     Dosage: UNK
     Route: 042
     Dates: start: 20100331, end: 20100331
  32. DORMICUM                           /00036201/ [Concomitant]
     Indication: SEDATION
     Dosage: UNK
     Route: 042
     Dates: start: 20100331, end: 20100331
  33. ERYTHROCYTE CONCENTRATE [Concomitant]
     Indication: ANAEMIA
     Dosage: UNK
     Route: 042
     Dates: start: 20100331, end: 20100331
  34. KALIUM CHLORID [Concomitant]
     Indication: MINERAL SUPPLEMENTATION
     Dosage: UNK
     Route: 042
     Dates: start: 20100407, end: 20100407
  35. METRONIDAZOL                       /00012501/ [Concomitant]
     Indication: GASTROENTERITIS
     Dosage: UNK, BID
     Route: 048
     Dates: start: 20100407
  36. KALINOR                            /00031402/ [Concomitant]
     Indication: MINERAL SUPPLEMENTATION
     Dosage: UNK
     Route: 048
     Dates: start: 20100407

REACTIONS (1)
  - Toxic epidermal necrolysis [Fatal]
